FAERS Safety Report 8990270 (Version 3)
Quarter: 2014Q1

REPORT INFORMATION
  Report Type: Spontaneous
  Country: CN (occurrence: CN)
  Receive Date: 20121228
  Receipt Date: 20140314
  Transmission Date: 20141002
  Serious: Yes (Death, Other)
  Sender: FDA-Public Use
  Company Number: CN-ASTRAZENECA-2012SE95842

PATIENT
  Age: 23376 Day
  Sex: Male
  Weight: 55 kg

DRUGS (3)
  1. DIPRIVAN [Suspect]
     Indication: ENDOSCOPY UPPER GASTROINTESTINAL TRACT
     Route: 042
     Dates: start: 20121212
  2. DIPRIVAN [Suspect]
     Indication: ENDOSCOPY UPPER GASTROINTESTINAL TRACT
     Route: 042
  3. FENTANYL [Suspect]
     Route: 065
     Dates: start: 20121212

REACTIONS (4)
  - Respiratory arrest [Fatal]
  - Cardiac arrest [Fatal]
  - Hypersensitivity [Fatal]
  - Dyskinesia [Unknown]
